FAERS Safety Report 20160257 (Version 1)
Quarter: 2021Q4

REPORT INFORMATION
  Report Type: Spontaneous
  Country: US (occurrence: None)
  Receive Date: 20211207
  Receipt Date: 20211207
  Transmission Date: 20220303
  Serious: Yes (Death)
  Sender: FDA-Public Use
  Company Number: None

PATIENT
  Age: 90 Year
  Sex: Male

DRUGS (1)
  1. ERLEADA [Suspect]
     Active Substance: APALUTAMIDE
     Indication: Prostate cancer
     Dosage: FREQUENCY : DAILY; TAKE 2 TO 4 TABLETS BY MOUTH DAILY?
     Route: 048
     Dates: start: 20200805

REACTIONS (1)
  - Death [None]

NARRATIVE: CASE EVENT DATE: 20211202
